FAERS Safety Report 6137120-X (Version None)
Quarter: 2009Q1

REPORT INFORMATION
  Report Type: 
  Country: None (occurrence: None)
  Receive Date: 20090330
  Receipt Date: 20090319
  Transmission Date: 20090719
  Serious: Yes (Hospitalization)
  Sender: FDA-Public Use
  Company Number: US-ELI_LILLY_AND_COMPANY-US200903005024

PATIENT
  Age: 59 Year
  Sex: Female

DRUGS (2)
  1. HUMULIN R [Suspect]
     Dosage: 75 U, 2/D
  2. INSULIN [Concomitant]

REACTIONS (1)
  - PNEUMONIA [None]
